FAERS Safety Report 8763616 (Version 1)
Quarter: 2012Q4

REPORT INFORMATION
  Report Type: 
  Country: US (occurrence: US)
  Receive Date: 20120831
  Receipt Date: 20120831
  Transmission Date: 20130627
  Serious: No
  Sender: FDA-Public Use
  Company Number: US-009507513-1208USA008303

PATIENT

DRUGS (1)
  1. IMPLANON [Suspect]
     Indication: CONTRACEPTION
     Dosage: 1 rof up to 3 yrs
     Route: 059
     Dates: start: 201007

REACTIONS (6)
  - Unintended pregnancy [Unknown]
  - Menorrhagia [Unknown]
  - Amenorrhoea [Recovered/Resolved]
  - Abdominal pain lower [Unknown]
  - Vaginitis bacterial [Unknown]
  - Urinary tract infection [Unknown]
